FAERS Safety Report 6996339-6 (Version None)
Quarter: 2010Q3

REPORT INFORMATION
  Report Type: 
  Country: None (occurrence: None)
  Receive Date: 20100918
  Receipt Date: 20090209
  Transmission Date: 20110219
  Serious: Yes (Life-Threatening, Hospitalization)
  Sender: FDA-Public Use
  Company Number: US-WYE-H07910609

PATIENT
  Sex: Female
  Weight: 68.1 kg

DRUGS (1)
  1. PREMPRO [Suspect]
     Indication: MENOPAUSE
     Dosage: ONE DAILY, DOSE UNSPECIFIED
     Route: 065

REACTIONS (1)
  - CEREBRAL INFARCTION [None]
